FAERS Safety Report 4878381-4 (Version None)
Quarter: 2005Q4

REPORT INFORMATION
  Report Type: 
  Country: None (occurrence: None)
  Receive Date: 20051209
  Receipt Date: 20050815
  Transmission Date: 20060501
  Serious: No
  Sender: FDA-Public Use
  Company Number: SUS1-2005-00627

PATIENT
  Age: 55 Year
  Sex: Female
  Weight: 82.1 kg

DRUGS (5)
  1. FOSRENOL [Suspect]
     Indication: BLOOD PHOSPHORUS INCREASED
     Dosage: 500 MG, 3X/DAY:TID, ORAL
     Route: 048
     Dates: start: 20050501
  2. RENAL VITAMIN [Concomitant]
  3. CLONIDINE [Concomitant]
  4. NORVASC /DEN/ (AMLODIPINE BESILATE) [Concomitant]
  5. FERROUS SULFATE TAB [Concomitant]

REACTIONS (2)
  - CONSTIPATION [None]
  - PRURITUS [None]
